FAERS Safety Report 5401569-0 (Version None)
Quarter: 2007Q3

REPORT INFORMATION
  Report Type: 
  Country: None (occurrence: None)
  Receive Date: 20070731
  Receipt Date: 20070719
  Transmission Date: 20080115
  Serious: Yes (Other)
  Sender: FDA-Public Use
  Company Number: US-ROCHE-507926

PATIENT
  Age: 53 Year
  Sex: Male

DRUGS (2)
  1. PEGASYS [Suspect]
     Indication: HEPATITIS C
     Dosage: PATIENT WAS ON THERAPY FOR 22 WEEKS.
     Route: 065
  2. RIBAVIRIN [Suspect]
     Indication: HEPATITIS C
     Dosage: PATIENT WAS ON THERAPY FOR 22 WEEKS.
     Route: 065

REACTIONS (2)
  - ANGER [None]
  - SPOUSAL ABUSE [None]
